FAERS Safety Report 11146650 (Version 1)
Quarter: 2015Q2

REPORT INFORMATION
  Report Type: Spontaneous
  Country: US (occurrence: US)
  Receive Date: 20150528
  Receipt Date: 20150528
  Transmission Date: 20150821
  Serious: No
  Sender: FDA-Public Use
  Company Number: US-TEVA-565005USA

PATIENT
  Sex: Female

DRUGS (1)
  1. COPAXONE [Suspect]
     Active Substance: GLATIRAMER ACETATE
     Indication: MULTIPLE SCLEROSIS
     Dosage: UNKNOWN FORM STRENGTH

REACTIONS (7)
  - Eye disorder [Unknown]
  - Memory impairment [Unknown]
  - Injection site reaction [Unknown]
  - Disturbance in attention [Unknown]
  - Paraesthesia [Unknown]
  - Injection site erythema [Unknown]
  - Vertigo [Unknown]
